FAERS Safety Report 23802993 (Version 1)
Quarter: 2024Q2

REPORT INFORMATION
  Report Type: Spontaneous
  Country: US (occurrence: US)
  Receive Date: 20240501
  Receipt Date: 20240501
  Transmission Date: 20240716
  Serious: Yes (Hospitalization, Other)
  Sender: FDA-Public Use
  Company Number: US-Accord-422055

PATIENT
  Age: 20 Year
  Sex: Female

DRUGS (1)
  1. BUPROPION HYDROCHLORIDE [Suspect]
     Active Substance: BUPROPION HYDROCHLORIDE
     Dosage: 30-40 PILLS IN THE BOTTLE?EXTENDED-RELEASE FORMULATION TABLETS
     Route: 048

REACTIONS (16)
  - Suicide attempt [Unknown]
  - Intentional overdose [Unknown]
  - Sinus tachycardia [Recovered/Resolved]
  - Bundle branch block bilateral [Recovered/Resolved]
  - Electrocardiogram QRS complex prolonged [Recovered/Resolved]
  - Electrocardiogram QT prolonged [Recovered/Resolved]
  - QRS axis abnormal [Recovered/Resolved]
  - Hypokalaemia [Recovered/Resolved]
  - Nausea [Recovered/Resolved]
  - Vomiting [Recovered/Resolved]
  - Seizure [Recovered/Resolved]
  - Maternal exposure during pregnancy [Unknown]
  - Presyncope [Recovered/Resolved]
  - Paraesthesia [Recovered/Resolved]
  - Agitation [Recovered/Resolved]
  - Somnolence [Recovered/Resolved]
